FAERS Safety Report 24844838 (Version 1)
Quarter: 2025Q1

REPORT INFORMATION
  Report Type: Spontaneous
  Country: GB (occurrence: GB)
  Receive Date: 20250115
  Receipt Date: 20250115
  Transmission Date: 20250409
  Serious: Yes (Death, Life-Threatening, Other)
  Sender: MYLAN
  Company Number: GB-MHRA-TPP23940342C10599670YC1736589271999

PATIENT
  Age: 26 Year
  Sex: Male

DRUGS (1)
  1. PENICILLAMINE [Suspect]
     Active Substance: PENICILLAMINE
     Indication: Ill-defined disorder
     Route: 065

REACTIONS (2)
  - Anaphylactic reaction [Fatal]
  - Rash [Unknown]

NARRATIVE: CASE EVENT DATE: 20250111
